FAERS Safety Report 9180878 (Version 2)
Quarter: 2013Q2

REPORT INFORMATION
  Report Type: Spontaneous
  Country: US (occurrence: None)
  Receive Date: 20120611
  Receipt Date: 20120913
  Transmission Date: 20140414
  Serious: Yes (Hospitalization)
  Sender: FDA-Public Use
  Company Number: PHEH2012US008875

PATIENT
  Age: 48 Year
  Sex: Female
  Weight: 93 kg

DRUGS (2)
  1. EXTAVIA [Suspect]
     Indication: MULTIPLE SCLEROSIS
     Route: 058
     Dates: start: 20120123, end: 20120402
  2. LOVASTATIN (LOVASTATIN) [Concomitant]

REACTIONS (5)
  - Cystitis [None]
  - Red blood cell count decreased [None]
  - Haemolytic anaemia [None]
  - Blood pressure increased [None]
  - Splenomegaly [None]
